FAERS Safety Report 6680938-5 (Version None)
Quarter: 2010Q2

REPORT INFORMATION
  Report Type: 
  Country: None (occurrence: None)
  Receive Date: 20100413
  Receipt Date: 20100413
  Transmission Date: 20101027
  Serious: No
  Sender: FDA-Public Use
  Company Number: None

PATIENT
  Age: 56 Year
  Sex: Female
  Weight: 58.9676 kg

DRUGS (2)
  1. ESTERFIELD ESTROGENS/METHYLTE 0.625MG/1.05MG AMNEAL [Suspect]
     Indication: HORMONE REPLACEMENT THERAPY
     Dosage: 1  1 A DAY PO
     Route: 048
     Dates: start: 20100308, end: 20100328
  2. METHYLTESTOSTERONE TABLETS [Concomitant]

REACTIONS (3)
  - DIZZINESS [None]
  - HOT FLUSH [None]
  - MIGRAINE [None]
